FAERS Safety Report 6044404-2 (Version None)
Quarter: 2009Q1

REPORT INFORMATION
  Report Type: 
  Country: None (occurrence: None)
  Receive Date: 20090115
  Receipt Date: 20090115
  Transmission Date: 20090719
  Serious: Yes (Hospitalization)
  Sender: FDA-Public Use
  Company Number: None

PATIENT
  Sex: Female
  Weight: 16.7 kg

DRUGS (4)
  1. CYTARABINE [Suspect]
     Dosage: 1430 MG
  2. DAUNORUBICIN HCL [Suspect]
     Dosage: 102 MG
  3. ETOPOSIDE [Suspect]
     Dosage: 340 MG
  4. MYLOTARG [Suspect]
     Dosage: 2 MG

REACTIONS (8)
  - BRADYCARDIA [None]
  - DIALYSIS [None]
  - HYPERTENSION [None]
  - PNEUMONIA [None]
  - PULMONARY OEDEMA [None]
  - RENAL FAILURE ACUTE [None]
  - SUBARACHNOID HAEMORRHAGE [None]
  - URINARY TRACT INFECTION FUNGAL [None]
